FAERS Safety Report 21863773 (Version 1)
Quarter: 2023Q1

REPORT INFORMATION
  Report Type: Spontaneous
  Country: US (occurrence: US)
  Receive Date: 20230116
  Receipt Date: 20230116
  Transmission Date: 20230418
  Serious: No
  Sender: FDA-Public Use
  Company Number: US-BIOGEN-2023BI01180941

PATIENT
  Age: 54 Year
  Sex: Female

DRUGS (1)
  1. VUMERITY [Suspect]
     Active Substance: DIROXIMEL FUMARATE
     Indication: Multiple sclerosis
     Route: 050
     Dates: start: 202108

REACTIONS (5)
  - Memory impairment [Unknown]
  - Pain in extremity [Unknown]
  - Lethargy [Unknown]
  - Cognitive disorder [Unknown]
  - Back pain [Unknown]

NARRATIVE: CASE EVENT DATE: 20230111
